FAERS Safety Report 14953039 (Version 1)
Quarter: 2018Q2

REPORT INFORMATION
  Report Type: Spontaneous
  Country: ES (occurrence: ES)
  Receive Date: 20180530
  Receipt Date: 20180530
  Transmission Date: 20180711
  Serious: Yes (Hospitalization, Other)
  Sender: FDA-Public Use
  Company Number: ES-BAYER-2018-100064

PATIENT
  Age: 73 Year
  Sex: Male

DRUGS (4)
  1. BISOPROLOL [Concomitant]
     Active Substance: BISOPROLOL
  2. AMIODARONE [Concomitant]
     Active Substance: AMIODARONE
  3. PRADAXA [Concomitant]
     Active Substance: DABIGATRAN ETEXILATE MESYLATE
  4. XOFIGO [Suspect]
     Active Substance: RADIUM RA-223 DICHLORIDE
     Indication: HORMONE-REFRACTORY PROSTATE CANCER
     Dosage: UNK
     Dates: start: 201707

REACTIONS (5)
  - Prostatic specific antigen abnormal [None]
  - Diarrhoea [None]
  - Respiratory tract infection [None]
  - Pain [None]
  - Hormone-refractory prostate cancer [None]

NARRATIVE: CASE EVENT DATE: 201803
